FAERS Safety Report 16626108 (Version 1)
Quarter: 2019Q3

REPORT INFORMATION
  Report Type: Spontaneous
  Country: US (occurrence: US)
  Receive Date: 20190724
  Receipt Date: 20190724
  Transmission Date: 20191004
  Serious: Yes (Other)
  Sender: FDA-Public Use
  Company Number: US-GILEAD-2019-0419688

PATIENT
  Age: 65 Year
  Sex: Female

DRUGS (7)
  1. HARVONI [Suspect]
     Active Substance: LEDIPASVIR\SOFOSBUVIR
     Indication: CHRONIC HEPATITIS C
     Dosage: UNKNOWN| ORAL| UNKNOWN
     Route: 065
  2. MULTIVITAMINUM [Concomitant]
     Dosage: UNKNOWN
  3. VOSEVI [Concomitant]
     Active Substance: SOFOSBUVIR\VELPATASVIR\VOXILAPREVIR
     Indication: CHRONIC HEPATITIS C
     Dosage: VOSEVI 400-100-100MG TABLET|ORAL|TAKE 1 TABLET BY MOUTH DAILY
  4. CALCITRATE [Concomitant]
     Active Substance: CALCIUM CITRATE
     Dosage: UNKNOWN
  5. ASPIR LOW [Concomitant]
     Active Substance: ASPIRIN
     Dosage: UNKNOWN
  6. VITAMIN D3 [Concomitant]
     Active Substance: CHOLECALCIFEROL
     Dosage: UNKNOWN
  7. SUPREP BOWEL PREP [Concomitant]
     Active Substance: MAGNESIUM SULFATE\POTASSIUM SULFATE\SODIUM SULFATE
     Dosage: UNKNOWN

REACTIONS (1)
  - Drug ineffective [Unknown]
